FAERS Safety Report 5305212-0 (Version None)
Quarter: 2007Q1

REPORT INFORMATION
  Report Type: 
  Country: None (occurrence: None)
  Receive Date: 20070201
  Receipt Date: 20061113
  Transmission Date: 20070707
  Serious: No
  Sender: FDA-Public Use
  Company Number: 2006PV025172

PATIENT
  Age: 74 Year
  Sex: Female

DRUGS (4)
  1. BYETTA [Suspect]
     Indication: DIABETES MELLITUS NON-INSULIN-DEPENDENT
     Dosage: SEE IMAGE
     Dates: start: 20060601, end: 20060801
  2. BYETTA [Suspect]
     Indication: DIABETES MELLITUS NON-INSULIN-DEPENDENT
     Dosage: SEE IMAGE
     Dates: start: 20060801
  3. NOVOLIN N [Concomitant]
  4. NOVOLOG [Concomitant]

REACTIONS (8)
  - DYSGEUSIA [None]
  - DYSPEPSIA [None]
  - INJECTION SITE HAEMORRHAGE [None]
  - INJECTION SITE IRRITATION [None]
  - MEDICATION ERROR [None]
  - NAUSEA [None]
  - VOMITING [None]
  - WEIGHT DECREASED [None]
